FAERS Safety Report 14187087 (Version 1)
Quarter: 2017Q4

REPORT INFORMATION
  Report Type: Spontaneous
  Country: US (occurrence: US)
  Receive Date: 20171113
  Receipt Date: 20171113
  Transmission Date: 20180321
  Serious: Yes (Other)
  Sender: FDA-Public Use
  Company Number: None

PATIENT
  Age: 71 Year
  Sex: Female
  Weight: 85.05 kg

DRUGS (9)
  1. CRESTOR [Concomitant]
     Active Substance: ROSUVASTATIN CALCIUM
  2. NAPROXEN. [Concomitant]
     Active Substance: NAPROXEN
  3. VITAMIN D [Concomitant]
     Active Substance: CHOLECALCIFEROL
  4. VITAMIN E COMPLEX [Concomitant]
  5. DOCUSATE [Concomitant]
     Active Substance: DOCUSATE
  6. FLUOXETINE [Concomitant]
     Active Substance: FLUOXETINE HYDROCHLORIDE
  7. GABAPENTIN. [Concomitant]
     Active Substance: GABAPENTIN
  8. CAPECITABINE. [Suspect]
     Active Substance: CAPECITABINE
     Indication: BREAST CANCER
     Route: 048
     Dates: start: 20170718, end: 20171113
  9. ASPIRIN LOW DOSE [Concomitant]
     Active Substance: ASPIRIN

REACTIONS (1)
  - Drug tolerance [None]
